FAERS Safety Report 8620627-0 (Version None)
Quarter: 2012Q3

REPORT INFORMATION
  Report Type: 
  Country: None (occurrence: None)
  Receive Date: 20120824
  Receipt Date: 20120817
  Transmission Date: 20120928
  Serious: Yes (Other)
  Sender: FDA-Public Use
  Company Number: BR-ACTELION-A-CH2012-70322

PATIENT
  Age: 45 Year
  Sex: Female

DRUGS (1)
  1. TRACLEER [Suspect]
     Indication: DIGITAL ULCER
     Dosage: 125 MG, BID
     Route: 048
     Dates: end: 20120813

REACTIONS (10)
  - PERIPHERAL COLDNESS [None]
  - BEDRIDDEN [None]
  - PAIN IN EXTREMITY [None]
  - EXTREMITY NECROSIS [None]
  - MALAISE [None]
  - DIZZINESS [None]
  - PAIN [None]
  - ERYTHEMA [None]
  - HEADACHE [None]
  - DYSPNOEA [None]
